FAERS Safety Report 6409891-6 (Version None)
Quarter: 2009Q4

REPORT INFORMATION
  Report Type: 
  Country: None (occurrence: None)
  Receive Date: 20091022
  Receipt Date: 20091019
  Transmission Date: 20100525
  Serious: Yes (Death, Hospitalization, Other)
  Sender: FDA-Public Use
  Company Number: GB-TEVA-212811ISR

PATIENT
  Age: 62 Year
  Sex: Female

DRUGS (6)
  1. CISPLATIN [Suspect]
  2. ETOPOSIDE [Suspect]
  3. METHOTREXATE [Suspect]
  4. CYCLOPHOSPHAMIDE [Suspect]
  5. VINCRISTINE SULFATE [Suspect]
  6. ACTINOMYCINES [Suspect]

REACTIONS (1)
  - TOXIC EPIDERMAL NECROLYSIS [None]
